FAERS Safety Report 22245063 (Version 1)
Quarter: 2023Q2

REPORT INFORMATION
  Report Type: Spontaneous
  Country: RU (occurrence: RU)
  Receive Date: 20230424
  Receipt Date: 20230424
  Transmission Date: 20230722
  Serious: Yes (Other)
  Sender: FDA-Public Use
  Company Number: RU-002147023-NVSC2023RU090363

PATIENT
  Age: 67 Year
  Sex: Male
  Weight: 115 kg

DRUGS (5)
  1. AMOXICILLIN\CLAVULANATE POTASSIUM [Suspect]
     Active Substance: AMOXICILLIN\CLAVULANATE POTASSIUM
     Indication: Endocarditis
     Dosage: 2400 MG, TID
     Route: 041
     Dates: start: 20230320, end: 20230405
  2. VANCOMYCIN [Concomitant]
     Active Substance: VANCOMYCIN
     Indication: Endocarditis
     Dosage: 1 G
     Route: 041
     Dates: start: 20230320, end: 20230406
  3. WARFARIN [Concomitant]
     Active Substance: WARFARIN
     Indication: Mitral valve replacement
     Dosage: UNK
     Route: 048
     Dates: start: 202303, end: 202304
  4. PERINDOPRIL [Concomitant]
     Active Substance: PERINDOPRIL
     Indication: Hypertension
     Dosage: 2 MG
     Route: 048
     Dates: start: 202303
  5. BISOPROLOL [Concomitant]
     Active Substance: BISOPROLOL
     Indication: Hypertension
     Dosage: 2.5 MG
     Route: 048
     Dates: start: 202303, end: 202304

REACTIONS (1)
  - Urticaria [Recovered/Resolved]

NARRATIVE: CASE EVENT DATE: 20230405
